FAERS Safety Report 16017664 (Version 1)
Quarter: 2019Q2

REPORT INFORMATION
  Report Type: Spontaneous
  Country: US (occurrence: US)
  Receive Date: 20190228
  Receipt Date: 20190228
  Transmission Date: 20190711
  Serious: Yes (Hospitalization, Disabling)
  Sender: FDA-Public Use
  Company Number: None

PATIENT
  Age: 75 Year
  Sex: Male
  Weight: 84 kg

DRUGS (1)
  1. XARELTO [Suspect]
     Active Substance: RIVAROXABAN
     Indication: ATRIAL FIBRILLATION
     Route: 048

REACTIONS (9)
  - Hemiparesis [None]
  - Subdural haemorrhage [None]
  - Lethargy [None]
  - Bradycardia [None]
  - Headache [None]
  - Speech disorder [None]
  - Head injury [None]
  - Fall [None]
  - Bedridden [None]

NARRATIVE: CASE EVENT DATE: 20190225
